FAERS Safety Report 20532462 (Version 2)
Quarter: 2022Q1

REPORT INFORMATION
  Report Type: Report from Study
  Country: US (occurrence: US)
  Receive Date: 20220301
  Receipt Date: 20220330
  Transmission Date: 20220423
  Serious: Yes (Death, Life-Threatening, Hospitalization)
  Sender: FDA-Public Use
  Company Number: US-SERVIER-S21010138

PATIENT

DRUGS (15)
  1. VINCRISTINE SULFATE [Suspect]
     Active Substance: VINCRISTINE SULFATE
     Indication: Acute lymphocytic leukaemia
     Dosage: 2 MG, 1X/WEEK
     Route: 042
     Dates: start: 20210827, end: 20210827
  2. VINCRISTINE SULFATE [Suspect]
     Active Substance: VINCRISTINE SULFATE
     Dosage: 2 MG, 1X/WEEK
     Route: 042
     Dates: start: 20210903, end: 20210903
  3. DAUNORUBICIN HYDROCHLORIDE [Suspect]
     Active Substance: DAUNORUBICIN HYDROCHLORIDE
     Indication: Acute lymphocytic leukaemia
     Dosage: 51.5 MG, 1X/WEEK
     Route: 042
     Dates: start: 20210827, end: 20210827
  4. DAUNORUBICIN HYDROCHLORIDE [Suspect]
     Active Substance: DAUNORUBICIN HYDROCHLORIDE
     Dosage: 51.5 MG, 1X/WEEK
     Route: 042
     Dates: start: 20210903, end: 20210903
  5. ENOXAPARIN SODIUM [Suspect]
     Active Substance: ENOXAPARIN SODIUM
     Indication: Thrombosis prophylaxis
     Dosage: 40 MG, QD
     Route: 051
     Dates: start: 20210827, end: 20210830
  6. ENOXAPARIN SODIUM [Suspect]
     Active Substance: ENOXAPARIN SODIUM
     Dosage: 60 MG, QD
     Route: 051
     Dates: start: 20210831
  7. TN UNSPECIFIED [Concomitant]
     Indication: Acute lymphocytic leukaemia
     Dosage: 10.3 MG, BID
     Route: 042
     Dates: start: 20210827, end: 20210903
  8. TN UNSPECIFIED [Concomitant]
     Dosage: 10.3 MG, OTHER
     Route: 042
     Dates: start: 20210910, end: 20210914
  9. TN UNSPECIFIED [Concomitant]
     Indication: Antiviral prophylaxis
     Dosage: 800 MG, BID
     Route: 048
     Dates: start: 20210824
  10. TN UNSPECIFIED [Concomitant]
     Indication: Procedural pain
     Dosage: 1 DF, QD
     Route: 062
     Dates: start: 20210825
  11. URSODIOL [Concomitant]
     Active Substance: URSODIOL
     Indication: Prophylaxis
     Dosage: 300 MG, TID
     Route: 048
     Dates: start: 20210827
  12. TN UNSPECIFIED [Concomitant]
     Indication: Electrolyte substitution therapy
     Dosage: 100 ML, PRN
     Route: 051
     Dates: start: 20210827, end: 20210830
  13. TN UNSPECIFIED [Concomitant]
     Indication: Tumour lysis syndrome
     Dosage: 300 MG, QD
     Route: 048
     Dates: start: 20210824, end: 20210829
  14. TN UNSPECIFIED [Concomitant]
     Indication: Prophylaxis
  15. TN UNSPECIFIED [Concomitant]
     Indication: Electrolyte substitution therapy
     Dosage: 100 ML, OTHER
     Route: 051
     Dates: start: 20210824, end: 20210827

REACTIONS (5)
  - Haemorrhage intracranial [Fatal]
  - Pulmonary embolism [Recovered/Resolved]
  - Blood bilirubin increased [Not Recovered/Not Resolved]
  - Septic shock [Recovered/Resolved]
  - Febrile neutropenia [Recovered/Resolved]

NARRATIVE: CASE EVENT DATE: 20210827
